FAERS Safety Report 6812324-9 (Version None)
Quarter: 2010Q3

REPORT INFORMATION
  Report Type: 
  Country: None (occurrence: None)
  Receive Date: 20100701
  Receipt Date: 20100621
  Transmission Date: 20110219
  Serious: Yes (Life-Threatening, Other)
  Sender: FDA-Public Use
  Company Number: NL-GENZYME-CLOF-1000987

PATIENT
  Sex: Male
  Weight: 190 kg

DRUGS (10)
  1. EVOLTRA [Suspect]
     Indication: ACUTE MYELOID LEUKAEMIA
     Dosage: UNK
     Dates: start: 20100324
  2. EVOLTRA [Suspect]
     Dosage: 22 MG, QDX5
     Route: 042
     Dates: start: 20100423, end: 20100427
  3. CYTARABINE [Suspect]
     Indication: ACUTE LEUKAEMIA
     Dosage: UNK
     Dates: start: 20100324
  4. CYTARABINE [Suspect]
     Dosage: 2200 MG, QDX5
     Route: 042
     Dates: start: 20100423, end: 20100427
  5. IDARUBICIN HCL [Suspect]
     Indication: ACUTE MYELOID LEUKAEMIA
     Dosage: UNK
     Dates: start: 20100324
  6. AMSACRINE [Concomitant]
     Indication: PRODUCT USED FOR UNKNOWN INDICATION
     Dosage: 265 MG, UNK
     Route: 042
  7. CETIRIZINE HCL [Concomitant]
     Indication: PRODUCT USED FOR UNKNOWN INDICATION
     Dosage: 10 MG, UNK
     Route: 048
  8. ZOPICLON [Concomitant]
     Indication: PRODUCT USED FOR UNKNOWN INDICATION
     Dosage: 7.5 MG, UNK
     Route: 048
  9. FRAXI [Concomitant]
     Indication: PRODUCT USED FOR UNKNOWN INDICATION
  10. DEXRUM [Concomitant]
     Indication: PRODUCT USED FOR UNKNOWN INDICATION

REACTIONS (3)
  - INFECTIVE THROMBOSIS [None]
  - PERICARDIAL EFFUSION [None]
  - PERICARDITIS INFECTIVE [None]
